FAERS Safety Report 8394681-8 (Version None)
Quarter: 2012Q2

REPORT INFORMATION
  Report Type: 
  Country: None (occurrence: None)
  Receive Date: 20120529
  Receipt Date: 20120529
  Transmission Date: 20120825
  Serious: Yes (Other)
  Sender: FDA-Public Use
  Company Number: None

PATIENT
  Age: 26 Year
  Sex: Male
  Weight: 96.1626 kg

DRUGS (1)
  1. AMITRIPTYLINE HCL [Suspect]
     Indication: MIGRAINE PROPHYLAXIS
     Dosage: 100MG DAILY PO
     Route: 048
     Dates: start: 20120313, end: 20120517

REACTIONS (5)
  - MOTOR DYSFUNCTION [None]
  - ANXIETY [None]
  - MUSCLE TWITCHING [None]
  - TARDIVE DYSKINESIA [None]
  - INJURY [None]
